FAERS Safety Report 14661827 (Version 1)
Quarter: 2018Q1

REPORT INFORMATION
  Report Type: Spontaneous
  Country: US (occurrence: US)
  Receive Date: 20180318
  Receipt Date: 20180318
  Transmission Date: 20180509
  Serious: No
  Sender: FDA-Public Use
  Company Number: None

PATIENT
  Age: 57 Year
  Sex: Male
  Weight: 78.75 kg

DRUGS (1)
  1. DEXTROAMPHETAMINE SULFATE. [Suspect]
     Active Substance: DEXTROAMPHETAMINE SULFATE
     Indication: ATTENTION DEFICIT/HYPERACTIVITY DISORDER
     Dosage: ?          QUANTITY:1 TABLET(S);?
     Route: 048
     Dates: start: 20180317, end: 20180317

REACTIONS (14)
  - Product formulation issue [None]
  - Drug ineffective [None]
  - Malaise [None]
  - Product substitution issue [None]
  - Legal problem [None]
  - Headache [None]
  - Chills [None]
  - Hyperhidrosis [None]
  - Tremor [None]
  - Disturbance in attention [None]
  - Pain [None]
  - Product tampering [None]
  - Withdrawal syndrome [None]
  - Heart rate increased [None]

NARRATIVE: CASE EVENT DATE: 20180317
